FAERS Safety Report 10046656 (Version 1)
Quarter: 2014Q1

REPORT INFORMATION
  Report Type: Spontaneous
  Country: US (occurrence: None)
  Receive Date: 20140328
  Receipt Date: 20140328
  Transmission Date: 20141002
  Serious: Yes (Life-Threatening, Hospitalization, Disabling)
  Sender: FDA-Public Use
  Company Number: None

PATIENT
  Age: 41 Year
  Sex: Female
  Weight: 81.65 kg

DRUGS (7)
  1. XARELTO [Suspect]
     Indication: COAGULOPATHY
     Route: 048
     Dates: start: 201309, end: 20140109
  2. XARELTO [Suspect]
     Indication: SYSTEMIC LUPUS ERYTHEMATOSUS
     Route: 048
     Dates: start: 201309, end: 20140109
  3. COMADIN [Concomitant]
  4. ALTERNATE MEDICATION [Concomitant]
  5. CARDIOVELAL [Concomitant]
  6. PRANACHOL [Concomitant]
  7. ASPIRIN [Concomitant]

REACTIONS (1)
  - Intracardiac thrombus [None]
